FAERS Safety Report 14543504 (Version 1)
Quarter: 2018Q1

REPORT INFORMATION
  Report Type: Report from Study
  Country: US (occurrence: US)
  Receive Date: 20180216
  Receipt Date: 20180216
  Transmission Date: 20180509
  Serious: Yes (Other)
  Sender: FDA-Public Use
  Company Number: US-JNJFOC-20180215137

PATIENT
  Age: 58 Year
  Sex: Female
  Weight: 69.85 kg

DRUGS (1)
  1. USTEKINUMAB [Suspect]
     Active Substance: USTEKINUMAB
     Indication: PSORIASIS
     Route: 058
     Dates: start: 20170605

REACTIONS (1)
  - Uterine leiomyosarcoma [Unknown]

NARRATIVE: CASE EVENT DATE: 20180209
